FAERS Safety Report 9345231 (Version 2)
Quarter: 2013Q4

REPORT INFORMATION
  Report Type: Spontaneous
  Country: GB (occurrence: GB)
  Receive Date: 20130612
  Receipt Date: 20131014
  Transmission Date: 20140711
  Serious: Yes (Other)
  Sender: FDA-Public Use
  Company Number: GB-UCBSA-088666

PATIENT
  Age: 59 Year
  Sex: Female
  Weight: 76 kg

DRUGS (3)
  1. CIMZIA [Suspect]
     Indication: RHEUMATOID ARTHRITIS
     Dates: start: 201203, end: 20130418
  2. NAPROXEN [Concomitant]
     Indication: RHEUMATOID ARTHRITIS
     Route: 048
  3. CO-CODAMOL [Concomitant]
     Indication: RHEUMATOID ARTHRITIS
     Dosage: 8/500 MG PIN FOUR TIMES A DAY
     Route: 048

REACTIONS (1)
  - Pulmonary tuberculosis [Recovering/Resolving]
